FAERS Safety Report 16467106 (Version 4)
Quarter: 2020Q1

REPORT INFORMATION
  Report Type: Report from Study
  Country: AT (occurrence: AT)
  Receive Date: 20190624
  Receipt Date: 20200225
  Transmission Date: 20200409
  Serious: Yes (Hospitalization)
  Sender: FDA-Public Use
  Company Number: AT-ROCHE-2341834

PATIENT
  Age: 63 Year
  Sex: Male
  Weight: 69 kg

DRUGS (4)
  1. NEBILAN [Concomitant]
     Active Substance: NEBIVOLOL HYDROCHLORIDE
     Route: 048
  2. AMLODIPINE [Concomitant]
     Active Substance: AMLODIPINE BESYLATE
     Route: 065
     Dates: start: 20190404
  3. RITUXIMAB. [Suspect]
     Active Substance: RITUXIMAB
     Indication: CHRONIC LYMPHOCYTIC LEUKAEMIA
     Dosage: CYCLE 1?DATE OF MOST RECENT DOSE OF RITUXIMAB PRIOR TO ONSET OF INCREASED LIVER ENZYMES:  27/MAY/201
     Route: 042
     Dates: start: 20190527
  4. CANDESARTAN. [Concomitant]
     Active Substance: CANDESARTAN
     Route: 048
     Dates: start: 20190404

REACTIONS (1)
  - Hepatic enzyme increased [Recovered/Resolved]

NARRATIVE: CASE EVENT DATE: 20190616
